FAERS Safety Report 14205489 (Version 1)
Quarter: 2017Q4

REPORT INFORMATION
  Report Type: Spontaneous
  Country: US (occurrence: None)
  Receive Date: 20171118
  Receipt Date: 20171118
  Transmission Date: 20180321
  Serious: Yes (Hospitalization)
  Sender: FDA-Public Use
  Company Number: None

PATIENT
  Age: 54 Year
  Sex: Female

DRUGS (2)
  1. IBRANCE [Suspect]
     Active Substance: PALBOCICLIB
     Indication: BREAST CANCER FEMALE
     Dosage: FREQUENCY - QD FOR 21 DAYS
     Route: 048
     Dates: start: 20171117
  2. IBRANCE [Suspect]
     Active Substance: PALBOCICLIB
     Indication: BREAST CANCER FEMALE
     Dosage: FREQUENCY - QD FOR 21 DAYS
     Route: 048
     Dates: start: 20170323, end: 20171117

REACTIONS (4)
  - Immune system disorder [None]
  - Nausea [None]
  - Dizziness [None]
  - Stomatitis [None]

NARRATIVE: CASE EVENT DATE: 20171117
